FAERS Safety Report 7004056-1 (Version None)
Quarter: 2010Q3

REPORT INFORMATION
  Report Type: 
  Country: None (occurrence: None)
  Receive Date: 20100920
  Receipt Date: 20100112
  Transmission Date: 20110219
  Serious: No
  Sender: FDA-Public Use
  Company Number: US-WYE-H12974610

PATIENT
  Sex: Female

DRUGS (2)
  1. PRISTIQ [Suspect]
     Indication: DEPRESSION
     Route: 048
     Dates: start: 20090101, end: 20091201
  2. PRISTIQ [Suspect]
     Dosage: INCREASED DURATION BETWEEN DOSES AND ^LATELY^ HAS BEEN GOING 3-4 DAYS BETWEEN DOSES
     Route: 052
     Dates: start: 20091201

REACTIONS (4)
  - ANXIETY [None]
  - DRUG WITHDRAWAL SYNDROME [None]
  - FEELING JITTERY [None]
  - HEADACHE [None]
